FAERS Safety Report 8958201 (Version 4)
Quarter: 2013Q2

REPORT INFORMATION
  Report Type: Report from Study
  Country: US (occurrence: US)
  Receive Date: 20121211
  Receipt Date: 20130411
  Transmission Date: 20140414
  Serious: Yes (Hospitalization)
  Sender: FDA-Public Use
  Company Number: US-PFIZER INC-2012302295

PATIENT
  Age: 25 Year
  Sex: Male
  Weight: 96.15 kg

DRUGS (1)
  1. TOFACITINIB CITRATE [Suspect]
     Indication: PSORIASIS
     Dosage: 10 MG, 2X/DAY
     Route: 048
     Dates: start: 20120411, end: 20121129

REACTIONS (1)
  - Meningitis herpes [Recovered/Resolved]
